FAERS Safety Report 6526196-3 (Version None)
Quarter: 2009Q4

REPORT INFORMATION
  Report Type: 
  Country: None (occurrence: None)
  Receive Date: 20091228
  Receipt Date: 20091216
  Transmission Date: 20100525
  Serious: Yes (Other)
  Sender: FDA-Public Use
  Company Number: 234970J09USA

PATIENT
  Age: 55 Year
  Sex: Female

DRUGS (9)
  1. REBIF [Suspect]
     Indication: MULTIPLE SCLEROSIS
     Dosage: 44 MCG, 3 IN 1 WEEKS, SUBCUTANEOUS, 22 MCG, 3 IN 1 WEEKS, SUBCUTANEOUS
     Route: 058
     Dates: start: 20091001, end: 20091201
  2. REBIF [Suspect]
     Indication: MULTIPLE SCLEROSIS
     Dosage: 44 MCG, 3 IN 1 WEEKS, SUBCUTANEOUS, 22 MCG, 3 IN 1 WEEKS, SUBCUTANEOUS
     Route: 058
     Dates: start: 20091201
  3. GLUCOPHAGE [Concomitant]
  4. TIZANIDINE HCL [Concomitant]
  5. AMITRIPTYLINE HYDROCHLORIDE [Concomitant]
  6. METOPROLOL (METOPROLOL) [Concomitant]
  7. VITAMIN D [Concomitant]
  8. VITAMIN B COMPLEX (B-KOMPLEX) [Concomitant]
  9. MULTIVITAMIN [Concomitant]

REACTIONS (1)
  - DIABETIC RETINOPATHY [None]
